FAERS Safety Report 8063699-7 (Version None)
Quarter: 2012Q1

REPORT INFORMATION
  Report Type: 
  Country: None (occurrence: None)
  Receive Date: 20120118
  Receipt Date: 20120106
  Transmission Date: 20120608
  Serious: Yes (Other)
  Sender: FDA-Public Use
  Company Number: DSA_48846_2012

PATIENT
  Sex: Female

DRUGS (1)
  1. ELIDEL [Suspect]
     Indication: VITILIGO
     Dosage: (DF)
     Dates: start: 20090101

REACTIONS (3)
  - ALOPECIA [None]
  - EYELID PTOSIS [None]
  - OFF LABEL USE [None]
